FAERS Safety Report 19874591 (Version 16)
Quarter: 2024Q3

REPORT INFORMATION
  Report Type: Spontaneous
  Country: CA (occurrence: CA)
  Receive Date: 20210922
  Receipt Date: 20240904
  Transmission Date: 20241017
  Serious: Yes (Death, Life-Threatening, Hospitalization, Disabling, Congenital Anomaly, Other)
  Sender: ANI
  Company Number: CA-SCALL-2021-CA-001419

PATIENT
  Age: 43 Year
  Sex: Female

DRUGS (108)
  1. CANDESARTAN CILEXETIL [Suspect]
     Active Substance: CANDESARTAN CILEXETIL
     Indication: Migraine
     Route: 048
  2. FETZIMA [Suspect]
     Active Substance: LEVOMILNACIPRAN HYDROCHLORIDE
     Indication: Product used for unknown indication
     Dosage: 1 DF QD / 1 DF QOD
     Route: 065
  3. GOLD SODIUM THIOMALATE [Suspect]
     Active Substance: GOLD SODIUM THIOMALATE
  4. HYDROMORPHONE [Suspect]
     Active Substance: HYDROMORPHONE
  5. INFLIXIMAB [Suspect]
     Active Substance: INFLIXIMAB
  6. LAMOTRIGINE [Suspect]
     Active Substance: LAMOTRIGINE
  7. LEFLUNOMIDE [Suspect]
     Active Substance: LEFLUNOMIDE
  8. LEVOMILNACIPRAN [Suspect]
     Active Substance: LEVOMILNACIPRAN
  9. METHOTREXATE [Suspect]
     Active Substance: METHOTREXATE
  10. METHYLPREDNISOLONE [Suspect]
     Active Substance: METHYLPREDNISOLONE
  11. ORENCIA [Suspect]
     Active Substance: ABATACEPT
  12. PSEUDOEPHEDRINE HYDROCHLORIDE [Suspect]
     Active Substance: PSEUDOEPHEDRINE HYDROCHLORIDE
  13. FINACEA [Suspect]
     Active Substance: AZELAIC ACID
     Indication: Product used for unknown indication
     Dosage: 1 DF DAILY / UNK
     Route: 065
  14. RAMIPRIL [Suspect]
     Active Substance: RAMIPRIL
  15. ACTEMRA [Suspect]
     Active Substance: TOCILIZUMAB
     Dosage: 3011.2 MILLIGRAM / DOSE TEXT: 2912.0 MILLIGRAM / DOSE TEXT: 2912.0 MILLIGRAM / DOSE
     Route: 042
  16. CELECOXIB [Suspect]
     Active Substance: CELECOXIB
     Dosage: 2 DF QD / 2 DF QD
  17. CHOLECALCIFEROL [Suspect]
     Active Substance: CHOLECALCIFEROL
  18. OTEZLA [Suspect]
     Active Substance: APREMILAST
     Dosage: . 6 MG QD
  19. RITUXIMAB [Suspect]
     Active Substance: RITUXIMAB
     Route: 058
  20. SULFASALAZINE [Suspect]
     Active Substance: SULFASALAZINE
     Dosage: 2 G QD / 300 MG QD / 100 MG QD / 2 G QD
     Route: 048
  21. XELJANZ [Suspect]
     Active Substance: TOFACITINIB CITRATE
     Dosage: 10 MG QD
  22. HYDROMORPHONE [Suspect]
     Active Substance: HYDROMORPHONE
     Indication: Product used for unknown indication
     Dosage: 1 DF UNK / 4 DF DAILY / 1 DF DAILY / UNK / 1 DF QOD / 2 DF BID
     Route: 065
  23. LAMICTAL [Suspect]
     Active Substance: LAMOTRIGINE
     Dosage: DOSE TEXT: 1 EVERY 2 DAYS / DOSE TEXT: 1 EVERY 2 DAYS / UNK / UNK / 50 MG BID / 25 MG BID / DOSE TEX
     Route: 048
  24. MYRBETRIQ [Suspect]
     Active Substance: MIRABEGRON
     Indication: Product used for unknown indication
     Dosage: 1 DF QD / 1 DF QD / 1 DF QD / DOSE TEXT: 1 EVERY 2 DAYS / 1 DF DAILY
     Route: 048
  25. NAPROXEN [Suspect]
     Active Substance: NAPROXEN
     Indication: Product used for unknown indication
     Dosage: 1 DF DAILY / 2 DF Q12H / 2 DF DAILY / 4 DF DAILY / 2 DF BID / 1 DF BID / DOSE TEXT: 1 EVERY 2 DAYS /
     Route: 065
  26. PANTOPRAZOLE [Suspect]
     Active Substance: PANTOPRAZOLE
     Indication: Product used for unknown indication
     Dosage: DOSE TEXT: 1 EVERY 2 DAYS / DOSE TEXT: 3 DOSAGE FORM / DOSE TEXT: UNK / 2 DF DAILY / 3 DF DAILY / UN
     Route: 065
  27. RANITIDINE [Suspect]
     Active Substance: RANITIDINE
     Indication: Product used for unknown indication
     Route: 065
  28. CETIRIZINE HYDROCHLORIDE [Suspect]
     Active Substance: CETIRIZINE HYDROCHLORIDE
     Indication: Product used for unknown indication
     Route: 065
  29. AIMOVIG [Suspect]
     Active Substance: ERENUMAB-AOOE
     Indication: Migraine
     Dosage: DOSE TEXT: 1 EVERY 1 DAYS / UNK / UNK / UNK / UNK
     Route: 065
  30. TOPAMAX [Suspect]
     Active Substance: TOPIRAMATE
     Indication: Product used for unknown indication
     Dosage: 25 MG QD
     Route: 065
  31. DESOXIMETASONE [Suspect]
     Active Substance: DESOXIMETASONE
     Indication: Product used for unknown indication
     Dosage: 50 MG DAILY / 1 DF UNK / 2 DF DAILY / 3 DF DAILY / DOSE TEXT: UNK / 50 MG DAILY
     Route: 065
  32. TRAZODONE [Suspect]
     Active Substance: TRAZODONE HYDROCHLORIDE
     Indication: Product used for unknown indication
     Dosage: 1 DF QD / 2 DF QD / 1 DF QD
     Route: 065
  33. TRETINOIN [Suspect]
     Active Substance: TRETINOIN
     Indication: Product used for unknown indication
     Dosage: 51 WEEKS 4 DAYS / 51 WEEKS 4 DAYS / UNK
     Route: 065
  34. VITAMIN D3 [Suspect]
     Active Substance: CHOLECALCIFEROL
     Indication: Product used for unknown indication
     Route: 065
  35. DOMPERIDONE\PANTOPRAZOLE SODIUM [Suspect]
     Active Substance: DOMPERIDONE\PANTOPRAZOLE SODIUM
     Indication: Product used for unknown indication
     Dosage: 3 DF DAILY
     Route: 065
  36. PANTOPRAZOLE SODIUM [Suspect]
     Active Substance: PANTOPRAZOLE SODIUM
     Indication: Product used for unknown indication
     Dosage: 2 DF DAILY / 3 DF DAILY / 3 DF DAILY / 3 DF DAILY / 1 DF Q12H / 2 DF DAILY / 1 DF DAILY
     Route: 065
  37. PAROXETINE [Suspect]
     Active Substance: PAROXETINE
     Indication: Product used for unknown indication
     Route: 065
  38. ATOMOXETINE [Suspect]
     Active Substance: ATOMOXETINE HYDROCHLORIDE
     Indication: Migraine
     Dosage: 1 DF BID / 1 DF BID / 1 DF BID / UNK / 1 DF DAILY / 1 DF BID / 1 DF DAILY
  39. PSEUDOEPHEDRINE HYDROCHLORIDE [Suspect]
     Active Substance: PSEUDOEPHEDRINE HYDROCHLORIDE
     Indication: Product used for unknown indication
     Route: 065
  40. VITAMIN C [Suspect]
     Active Substance: ASCORBIC ACID
     Indication: Product used for unknown indication
     Route: 065
  41. MAGNESIUM [Suspect]
     Active Substance: MAGNESIUM
     Indication: Product used for unknown indication
     Route: 065
  42. PHOSPHORUS [Suspect]
     Active Substance: PHOSPHORUS
     Indication: Product used for unknown indication
     Route: 065
  43. CALCIUM [Suspect]
     Active Substance: CALCIUM
     Indication: Product used for unknown indication
     Route: 065
  44. PSEUDOEPHEDRINE [Suspect]
     Active Substance: PSEUDOEPHEDRINE
     Indication: Product used for unknown indication
     Route: 065
  45. CETIRIZINE [Suspect]
     Active Substance: CETIRIZINE HYDROCHLORIDE
     Indication: Product used for unknown indication
     Dosage: 3 DF BID / 1 DF DAILY / DOSE TEXT: UNK / DOSE TEXT: UNK / 3 DF DAILY
     Route: 065
  46. CHOLECALCIFEROL [Suspect]
     Active Substance: CHOLECALCIFEROL
     Indication: Product used for unknown indication
     Route: 065
  47. FLUTICASONE FUROATE [Suspect]
     Active Substance: FLUTICASONE FUROATE
     Indication: Product used for unknown indication
     Dosage: UNK/ 1 DF DAILY
     Route: 065
  48. CETIRIZINE HYDROCHLORIDE\PSEUDOEPHEDRINE HYDROCHLORIDE [Suspect]
     Active Substance: CETIRIZINE HYDROCHLORIDE\PSEUDOEPHEDRINE HYDROCHLORIDE
     Route: 065
  49. CALCIUM\CHOLECALCIFEROL\MAGNESIUM [Suspect]
     Active Substance: CALCIUM\CHOLECALCIFEROL\MAGNESIUM
     Dosage: 1 DF DAILY
     Route: 065
  50. AZELAIC ACID [Suspect]
     Active Substance: AZELAIC ACID
     Route: 065
  51. TOPICORT [Suspect]
     Active Substance: DESOXIMETASONE
     Dosage: 25 MG BID / 1 DF BID
     Route: 065
  52. ERENUMAB-AOOE [Suspect]
     Active Substance: ERENUMAB-AOOE
     Route: 065
  53. DOMPERIDONE MALEATE [Suspect]
     Active Substance: DOMPERIDONE MALEATE
     Dosage: 1 EVERY 3 DAYS
     Route: 065
  54. VITAMINS [Suspect]
     Active Substance: VITAMINS
     Route: 065
  55. VITAMIN D3 [Suspect]
     Active Substance: CHOLECALCIFEROL
     Route: 065
  56. BETAMETHASONE [Suspect]
     Active Substance: BETAMETHASONE
     Indication: Product used for unknown indication
     Dosage: 1 DF BID / 1 DF DAILY / DOSE TEXT: UNK
     Route: 065
  57. STRATTERA [Suspect]
     Active Substance: ATOMOXETINE HYDROCHLORIDE
     Dosage: UNKNOWN
     Route: 065
  58. CALCIUM PANTOTHENATE [Suspect]
     Active Substance: CALCIUM PANTOTHENATE
     Dosage: 1 DF UNK
     Route: 065
  59. TRICHOLINE CITRATE [Suspect]
     Active Substance: TRICHOLINE CITRATE
     Route: 065
  60. CALCIUM CARBONATE [Suspect]
     Active Substance: CALCIUM CARBONATE
     Route: 065
  61. HYDROCORTISONE ACETATE [Suspect]
     Active Substance: HYDROCORTISONE ACETATE
     Dosage: 50 MG DAILY / 25 MG DAILY / DOSE TEXT: 2 EVERY 1 DAYS
     Route: 065
  62. BUPRENORPHINE [Suspect]
     Active Substance: BUPRENORPHINE
     Route: 065
  63. MAGNESIUM CARBONATE [Suspect]
     Active Substance: MAGNESIUM CARBONATE
     Route: 065
  64. ERENUMAB [Suspect]
     Active Substance: ERENUMAB
     Route: 065
  65. PREDNICARBATE [Suspect]
     Active Substance: PREDNICARBATE
     Route: 065
  66. CYANOCOBALAMIN [Suspect]
     Active Substance: CYANOCOBALAMIN
     Route: 065
  67. BOTOX [Suspect]
     Active Substance: ONABOTULINUMTOXINA
     Indication: Product used for unknown indication
     Dosage: 1 DAILY DF
     Route: 065
  68. THIAMINE HYDROCHLORIDE [Suspect]
     Active Substance: THIAMINE HYDROCHLORIDE
     Route: 065
  69. RIBOFLAVIN [Suspect]
     Active Substance: RIBOFLAVIN
     Route: 065
  70. PYRIDOXINE HYDROCHLORIDE [Suspect]
     Active Substance: PYRIDOXINE HYDROCHLORIDE
     Route: 065
  71. CETIRIZINE HYDROCHLORIDE\PSEUDOEPHEDRINE HYDROCHLORIDE [Suspect]
     Active Substance: CETIRIZINE HYDROCHLORIDE\PSEUDOEPHEDRINE HYDROCHLORIDE
     Route: 048
  72. TRIAMCINOLONE ACETONIDE [Suspect]
     Active Substance: TRIAMCINOLONE ACETONIDE
     Dosage: 1 EVERY 2 DAYS
  73. ACETAMINOPHEN [Suspect]
     Active Substance: ACETAMINOPHEN
     Route: 065
  74. CALCIUM GLUCONATE [Suspect]
     Active Substance: CALCIUM GLUCONATE
     Route: 065
  75. CORTISONE [Suspect]
     Active Substance: CORTISONE
     Dosage: 25 MG BID / 2 DF BID
     Route: 065
  76. ERGOCALCIFEROL [Suspect]
     Active Substance: ERGOCALCIFEROL
     Dosage: 1 DF UNK
     Route: 065
  77. FOLIC ACID [Suspect]
     Active Substance: FOLIC ACID
     Dosage: 1 DF UNK
     Route: 065
  78. BUTRANS [Suspect]
     Active Substance: BUPRENORPHINE
     Indication: Product used for unknown indication
     Route: 065
  79. MILNACIPRAN HYDROCHLORIDE [Suspect]
     Active Substance: MILNACIPRAN HYDROCHLORIDE
     Dosage: 1 DF BID
     Route: 065
  80. VITAMINS [Suspect]
     Active Substance: VITAMINS
     Dosage: 1 DF UNK
     Route: 065
  81. PAROXETINE [Suspect]
     Active Substance: PAROXETINE
     Route: 065
  82. RIBOFLAVIN\THIAMINE HYDROCHLORIDE [Suspect]
     Active Substance: RIBOFLAVIN\THIAMINE HYDROCHLORIDE
     Dosage: 1 DF UNK
     Route: 065
  83. VITAMIN A [Suspect]
     Active Substance: VITAMIN A
     Dosage: 1 DF UNK
     Route: 065
  84. VITAMINS NOS [Suspect]
     Active Substance: VITAMINS
     Dosage: 1 DF UNK
     Route: 065
  85. MINERALS\VITAMINS [Suspect]
     Active Substance: MINERALS\VITAMINS
  86. BETAMETHASONE VALERATE [Suspect]
     Active Substance: BETAMETHASONE VALERATE
     Dosage: 1 DF DAILY / 1 DF DAILY / 1 DF QOD
  87. TOPIRAMATE [Suspect]
     Active Substance: TOPIRAMATE
     Dosage: 25 MG DAILY / 25 MG BID / 25 MG DAILY / 1 MG DAILY / 3 MG DAILY / 25 MG BID
  88. CYCLOBENZAPRINE [Suspect]
     Active Substance: CYCLOBENZAPRINE
     Indication: Product used for unknown indication
     Dosage: 1 DF QD / DOSE TEXT: 1 EVERY DAY / 1 DF QOD
     Route: 065
  89. MINERALS\VITAMINS [Suspect]
     Active Substance: MINERALS\VITAMINS
  90. VITAMIN D [Suspect]
     Active Substance: VITAMIN D NOS
  91. DOMPERIDONE\PANTOPRAZOLE SODIUM [Suspect]
     Active Substance: DOMPERIDONE\PANTOPRAZOLE SODIUM
     Dosage: 3 DF DAILY / DOSE TEXT: 3 DOSAGE FORM / 1 DF QOD / UNK / UNK / DOSE TEXT: 4 EVERY 1 DAYS /
  92. ADALIMUMAB [Suspect]
     Active Substance: ADALIMUMAB
  93. ACETAMINOPHEN AND CODEINE [Suspect]
     Active Substance: ACETAMINOPHEN\CODEINE PHOSPHATE
  94. BERINERT [Suspect]
     Active Substance: HUMAN C1-ESTERASE INHIBITOR
  95. BOTULINUM TOXIN TYPE A [Suspect]
     Active Substance: BOTULINUM TOXIN TYPE A
  96. BUPRENORPHINE [Suspect]
     Active Substance: BUPRENORPHINE
  97. CHOLECALCIFEROL [Suspect]
     Active Substance: CHOLECALCIFEROL
  98. COSENTYX [Suspect]
     Active Substance: SECUKINUMAB
  99. DOMPERIDONE MALEATE [Suspect]
     Active Substance: DOMPERIDONE MALEATE
     Indication: Product used for unknown indication
     Dosage: 1 DF DAILY / 3 DF BID / 1 DF UNK / 1 DF DAILY / DOSE TEXT: CYCLICAL
     Route: 065
  100. CYCLOBENZAPRINE [Suspect]
     Active Substance: CYCLOBENZAPRINE
  101. DESOXIMETASONE [Suspect]
     Active Substance: DESOXIMETASONE
  102. DICLOFENAC DIETHYLAMINE [Suspect]
     Active Substance: DICLOFENAC DIETHYLAMINE
  103. ERELZI [Suspect]
     Active Substance: ETANERCEPT-SZZS
  104. ERGOCALCIFEROL [Suspect]
     Active Substance: ERGOCALCIFEROL
  105. FINACEA [Suspect]
     Active Substance: AZELAIC ACID
  106. FLUMETHASONE PIVALATE [Suspect]
     Active Substance: FLUMETHASONE PIVALATE
  107. FLUTICASONE PROPIONATE [Suspect]
     Active Substance: FLUTICASONE PROPIONATE
  108. FOSAMAX [Suspect]
     Active Substance: ALENDRONATE SODIUM

REACTIONS (147)
  - Abdominal pain upper [Not Recovered/Not Resolved]
  - Taste disorder [Not Recovered/Not Resolved]
  - Gait disturbance [Unknown]
  - Gait inability [Unknown]
  - Gastrointestinal disorder [Unknown]
  - General physical health deterioration [Unknown]
  - Grip strength decreased [Unknown]
  - Hand deformity [Unknown]
  - Headache [Unknown]
  - Helicobacter infection [Unknown]
  - Hepatic cirrhosis [Unknown]
  - Hypercholesterolaemia [Unknown]
  - Vomiting [Not Recovered/Not Resolved]
  - Ill-defined disorder [Unknown]
  - Impaired healing [Unknown]
  - Insomnia [Unknown]
  - Intentional product use issue [Unknown]
  - Joint stiffness [Unknown]
  - Joint swelling [Unknown]
  - Laryngitis [Not Recovered/Not Resolved]
  - Lip dry [Fatal]
  - Lower respiratory tract infection [Not Recovered/Not Resolved]
  - Lung disorder [Not Recovered/Not Resolved]
  - Lupus vulgaris [Not Recovered/Not Resolved]
  - Lupus-like syndrome [Not Recovered/Not Resolved]
  - Malaise [Not Recovered/Not Resolved]
  - Mobility decreased [Not Recovered/Not Resolved]
  - Muscle injury [Not Recovered/Not Resolved]
  - Musculoskeletal pain [Not Recovered/Not Resolved]
  - Musculoskeletal stiffness [Not Recovered/Not Resolved]
  - Nail disorder [Not Recovered/Not Resolved]
  - Neck pain [Not Recovered/Not Resolved]
  - Night sweats [Not Recovered/Not Resolved]
  - Oedema [Not Recovered/Not Resolved]
  - Onychomadesis [Not Recovered/Not Resolved]
  - Pemphigus [Not Recovered/Not Resolved]
  - Peripheral swelling [Not Recovered/Not Resolved]
  - Prescribed overdose [Not Recovered/Not Resolved]
  - Prescribed underdose [Not Recovered/Not Resolved]
  - Pulmonary fibrosis [Not Recovered/Not Resolved]
  - Red blood cell sedimentation rate increased [Not Recovered/Not Resolved]
  - Pyrexia [Not Recovered/Not Resolved]
  - Rash [Not Recovered/Not Resolved]
  - Respiratory disorder [Not Recovered/Not Resolved]
  - Rheumatoid factor positive [Not Recovered/Not Resolved]
  - Sleep disorder [Not Recovered/Not Resolved]
  - Sleep disorder due to a general medical condition [Not Recovered/Not Resolved]
  - Swelling [Not Recovered/Not Resolved]
  - Swollen joint count increased [Not Recovered/Not Resolved]
  - Therapeutic product effect incomplete [Not Recovered/Not Resolved]
  - Treatment failure [Not Recovered/Not Resolved]
  - Weight increased [Not Recovered/Not Resolved]
  - Drug intolerance [Not Recovered/Not Resolved]
  - Wheezing [Not Recovered/Not Resolved]
  - X-ray abnormal [Not Recovered/Not Resolved]
  - Drug ineffective [Not Recovered/Not Resolved]
  - Off label use [Unknown]
  - Product use in unapproved indication [Unknown]
  - Maternal exposure during pregnancy [Not Recovered/Not Resolved]
  - Blepharospasm [Not Recovered/Not Resolved]
  - Alopecia [Not Recovered/Not Resolved]
  - Anti-cyclic citrullinated peptide antibody positive [Not Recovered/Not Resolved]
  - Arthropathy [Not Recovered/Not Resolved]
  - Blood cholesterol increased [Not Recovered/Not Resolved]
  - C-reactive protein increased [Not Recovered/Not Resolved]
  - Depression [Not Recovered/Not Resolved]
  - Dizziness [Not Recovered/Not Resolved]
  - Drug hypersensitivity [Not Recovered/Not Resolved]
  - Duodenal ulcer perforation [Not Recovered/Not Resolved]
  - Fibromyalgia [Not Recovered/Not Resolved]
  - Epilepsy [Not Recovered/Not Resolved]
  - Folliculitis [Not Recovered/Not Resolved]
  - Hepatic enzyme increased [Not Recovered/Not Resolved]
  - Hypertension [Not Recovered/Not Resolved]
  - Inflammation [Not Recovered/Not Resolved]
  - Infusion related reaction [Not Recovered/Not Resolved]
  - Irritable bowel syndrome [Not Recovered/Not Resolved]
  - Joint range of motion decreased [Not Recovered/Not Resolved]
  - Live birth [Not Recovered/Not Resolved]
  - Liver function test increased [Not Recovered/Not Resolved]
  - Muscle spasms [Not Recovered/Not Resolved]
  - Gastrooesophageal reflux disease [Not Recovered/Not Resolved]
  - Muscular weakness [Not Recovered/Not Resolved]
  - Nasopharyngitis [Not Recovered/Not Resolved]
  - Nausea [Not Recovered/Not Resolved]
  - Obesity [Not Recovered/Not Resolved]
  - Osteoarthritis [Not Recovered/Not Resolved]
  - Pain in extremity [Not Recovered/Not Resolved]
  - Pericarditis [Not Recovered/Not Resolved]
  - Peripheral venous disease [Not Recovered/Not Resolved]
  - Pneumonia [Not Recovered/Not Resolved]
  - Product quality issue [Not Recovered/Not Resolved]
  - Hypoaesthesia [Not Recovered/Not Resolved]
  - Product use issue [Not Recovered/Not Resolved]
  - Psoriatic arthropathy [Not Recovered/Not Resolved]
  - Rheumatic fever [Not Recovered/Not Resolved]
  - Rheumatoid arthritis [Not Recovered/Not Resolved]
  - Stomatitis [Not Recovered/Not Resolved]
  - Synovitis [Not Recovered/Not Resolved]
  - Systemic lupus erythematosus [Not Recovered/Not Resolved]
  - Therapeutic product effect decreased [Not Recovered/Not Resolved]
  - Type 2 diabetes mellitus [Not Recovered/Not Resolved]
  - Urticaria [Not Recovered/Not Resolved]
  - Memory impairment [Not Recovered/Not Resolved]
  - Wound [Not Recovered/Not Resolved]
  - Wound infection [Not Recovered/Not Resolved]
  - Abdominal discomfort [Not Recovered/Not Resolved]
  - Autoimmune disorder [Not Recovered/Not Resolved]
  - Blister [Not Recovered/Not Resolved]
  - Bone erosion [Not Recovered/Not Resolved]
  - Breast cancer stage II [Not Recovered/Not Resolved]
  - Breast cancer stage III [Not Recovered/Not Resolved]
  - Bursitis [Not Recovered/Not Resolved]
  - C-reactive protein [Not Recovered/Not Resolved]
  - Migraine [Not Recovered/Not Resolved]
  - Chest pain [Not Recovered/Not Resolved]
  - Condition aggravated [Not Recovered/Not Resolved]
  - Confusional state [Not Recovered/Not Resolved]
  - Contusion [Not Recovered/Not Resolved]
  - Crohn^s disease [Not Recovered/Not Resolved]
  - Decreased appetite [Not Recovered/Not Resolved]
  - Deep vein thrombosis postoperative [Not Recovered/Not Resolved]
  - Delirium [Not Recovered/Not Resolved]
  - Diarrhoea [Not Recovered/Not Resolved]
  - Discomfort [Not Recovered/Not Resolved]
  - Pain [Not Recovered/Not Resolved]
  - Dislocation of vertebra [Not Recovered/Not Resolved]
  - Drug ineffective [Unknown]
  - Dry mouth [Unknown]
  - Dyspnoea [Unknown]
  - Ear pain [Unknown]
  - Glossodynia [Unknown]
  - Adverse drug reaction [Unknown]
  - Adverse event [Unknown]
  - Adjustment disorder with depressed mood [Unknown]
  - Amnesia [Unknown]
  - Paraesthesia [Not Recovered/Not Resolved]
  - Anxiety [Unknown]
  - Arthralgia [Unknown]
  - Asthenia [Unknown]
  - Asthma [Unknown]
  - Back injury [Unknown]
  - C-reactive protein abnormal [Unknown]
  - Contraindicated product administered [Unknown]
  - Exostosis [Unknown]
  - Facet joint syndrome [Unknown]
  - Fatigue [Unknown]
